FAERS Safety Report 16692967 (Version 1)
Quarter: 2019Q4

REPORT INFORMATION
  Report Type: Spontaneous
  Country: US (occurrence: US)
  Receive Date: 20190810
  Receipt Date: 20190810
  Transmission Date: 20200122
  Serious: Yes (Other)
  Sender: FDA-Public Use
  Company Number: None

PATIENT
  Age: 57 Year
  Sex: Female

DRUGS (1)
  1. ARESTIN [Suspect]
     Active Substance: MINOCYCLINE HYDROCHLORIDE
     Indication: PERIODONTAL OPERATION
     Dosage: ?          QUANTITY:1 INJECTION(S);OTHER FREQUENCY:ONCE AT DENTIST^S;OTHER ROUTE:INJECTED INTO GUM?
     Dates: start: 20190805, end: 20190810

REACTIONS (6)
  - Tooth infection [None]
  - Nerve injury [None]
  - Gingivitis [None]
  - Tooth injury [None]
  - Post procedural infection [None]
  - Headache [None]

NARRATIVE: CASE EVENT DATE: 20190807
